FAERS Safety Report 8414963-0 (Version None)
Quarter: 2012Q2

REPORT INFORMATION
  Report Type: 
  Country: None (occurrence: None)
  Receive Date: 20120530
  Receipt Date: 20120521
  Transmission Date: 20120825
  Serious: Yes (Disabling)
  Sender: FDA-Public Use
  Company Number: 2012SP027224

PATIENT
  Age: 48 Year
  Sex: Male

DRUGS (2)
  1. NASONEX [Suspect]
     Indication: RHINITIS ALLERGIC
     Dosage: 200 MCG; QD;NAS; 100 MCG
     Route: 045
  2. ZYRTEC [Concomitant]

REACTIONS (3)
  - DIZZINESS [None]
  - NAUSEA [None]
  - IMPAIRED WORK ABILITY [None]
